FAERS Safety Report 6641210-2 (Version None)
Quarter: 2010Q1

REPORT INFORMATION
  Report Type: 
  Country: None (occurrence: None)
  Receive Date: 20100318
  Receipt Date: 20100310
  Transmission Date: 20100710
  Serious: Yes (Other)
  Sender: FDA-Public Use
  Company Number: PHEH2007US01592

PATIENT
  Sex: Female
  Weight: 62.131 kg

DRUGS (41)
  1. ELIDEL [Suspect]
     Indication: DERMATITIS
     Route: 061
     Dates: start: 20030101
  2. RITUXAN [Concomitant]
  3. RITUXIMAB [Concomitant]
  4. PREDNISONE [Concomitant]
     Dosage: 50 MG, UNK
  5. LOPROX [Concomitant]
  6. VALTREX [Concomitant]
  7. PROTONIX [Concomitant]
  8. ALLOPURINOL [Concomitant]
  9. ADRIAMYCIN PFS [Concomitant]
  10. VINCRISTINE [Concomitant]
  11. BENADRYL ^ACHE^ [Concomitant]
  12. TYLENOL-500 [Concomitant]
  13. CYTOXAN [Concomitant]
  14. DECADRON [Concomitant]
  15. COMPAZINE [Concomitant]
  16. CIPROFLOXACIN [Concomitant]
  17. PHENERGAN ^AVENTIS PHARMA^ [Concomitant]
  18. ADVIL LIQUI-GELS [Concomitant]
  19. PERCOCET [Concomitant]
  20. MORPHINE [Concomitant]
  21. ZANTAC [Concomitant]
  22. HEPARIN [Concomitant]
     Route: 058
  23. COLACE [Concomitant]
  24. AMBIEN [Concomitant]
     Dosage: 10 MG/ 1 QHS
  25. KLONOPIN [Concomitant]
  26. ZITHROMAX [Concomitant]
  27. ANAPROX [Concomitant]
  28. VERAMYST [Concomitant]
  29. MAALOX                                  /NET/ [Concomitant]
  30. MOTRIN [Concomitant]
  31. TRIAMCINOLONE ACETONIDE W/NYSTATIN [Concomitant]
  32. ORTHO TRI-CYCLEN [Concomitant]
  33. AMOXICILLIN [Concomitant]
  34. DOXYCYCLINE [Concomitant]
  35. CEPHALEXIN [Concomitant]
  36. CLONAZEPAM [Concomitant]
  37. TERCONAZOLE [Concomitant]
  38. METRONIDAZOLE [Concomitant]
  39. PROMETHAZINE [Concomitant]
  40. AZITHROMYCIN [Concomitant]
  41. TERAZOL 1 [Concomitant]

REACTIONS (27)
  - ANAEMIA [None]
  - ASTHENIA [None]
  - BIOPSY BONE MARROW [None]
  - CENTRAL VENOUS CATHETER REMOVAL [None]
  - CENTRAL VENOUS CATHETERISATION [None]
  - CONJUNCTIVITIS VIRAL [None]
  - DEEP VEIN THROMBOSIS [None]
  - DYSPNOEA [None]
  - FOOD POISONING [None]
  - GASTRITIS [None]
  - HERPES SIMPLEX [None]
  - HERPES ZOSTER [None]
  - INSOMNIA [None]
  - KELOID SCAR [None]
  - LUNG NEOPLASM [None]
  - MEDIASTINAL BIOPSY [None]
  - MEDIASTINAL MASS [None]
  - NAUSEA [None]
  - NIGHT SWEATS [None]
  - PANIC ATTACK [None]
  - PERICARDIAL EFFUSION [None]
  - PLEURITIC PAIN [None]
  - PRIMARY MEDIASTINAL LARGE B-CELL LYMPHOMA STAGE II [None]
  - STRESS ULCER [None]
  - URINARY TRACT INFECTION [None]
  - VOMITING [None]
  - WEIGHT DECREASED [None]
